FAERS Safety Report 4331007-0 (Version None)
Quarter: 2004Q1

REPORT INFORMATION
  Report Type: 
  Country: None (occurrence: None)
  Receive Date: 20040331
  Receipt Date: 20040318
  Transmission Date: 20041129
  Serious: Yes (Hospitalization, Other)
  Sender: FDA-Public Use
  Company Number: 2004019120

PATIENT

DRUGS (2)
  1. TIKOSYN [Suspect]
     Indication: ILL-DEFINED DISORDER
  2. ZITHROMAX [Suspect]
     Indication: ILL-DEFINED DISORDER

REACTIONS (1)
  - DRUG INTERACTION [None]
